FAERS Safety Report 6134799-3 (Version None)
Quarter: 2009Q1

REPORT INFORMATION
  Report Type: 
  Country: None (occurrence: None)
  Receive Date: 20090327
  Receipt Date: 20090316
  Transmission Date: 20090719
  Serious: Yes (Hospitalization, Other)
  Sender: FDA-Public Use
  Company Number: US-PFIZER INC-2009185157

PATIENT
  Sex: Female
  Weight: 62.132 kg

DRUGS (1)
  1. CHANTIX [Suspect]
     Indication: SMOKING CESSATION THERAPY
     Dosage: UNKNOWN
     Route: 048
     Dates: start: 20090224, end: 20090310

REACTIONS (8)
  - ABNORMAL DREAMS [None]
  - DECREASED APPETITE [None]
  - DEHYDRATION [None]
  - INSOMNIA [None]
  - MOOD SWINGS [None]
  - PYREXIA [None]
  - SWELLING [None]
  - WHITE BLOOD CELL COUNT ABNORMAL [None]
